FAERS Safety Report 21537779 (Version 1)
Quarter: 2022Q4

REPORT INFORMATION
  Report Type: Spontaneous
  Country: US (occurrence: US)
  Receive Date: 20221101
  Receipt Date: 20221101
  Transmission Date: 20230112
  Serious: Yes (Hospitalization)
  Sender: FDA-Public Use
  Company Number: US-SA-SAC20221031000412

PATIENT
  Sex: Male

DRUGS (2)
  1. DUPIXENT [Suspect]
     Active Substance: DUPILUMAB
     Indication: Dermatitis atopic
     Dosage: 300 MG, QOW (300 MG/2ML; INJECT 1 PEN UNDER THE SKIN)
     Route: 058
     Dates: start: 20211028
  2. EUCRISA [Concomitant]
     Active Substance: CRISABOROLE

REACTIONS (1)
  - Surgery [Unknown]
